FAERS Safety Report 6293692-6 (Version None)
Quarter: 2009Q3

REPORT INFORMATION
  Report Type: 
  Country: None (occurrence: None)
  Receive Date: 20090729
  Receipt Date: 20090722
  Transmission Date: 20100115
  Serious: Yes (Other)
  Sender: FDA-Public Use
  Company Number: 8048944

PATIENT
  Sex: Female

DRUGS (3)
  1. KEPPRA [Suspect]
     Dosage: PO
     Route: 048
  2. VIMPAT [Suspect]
     Dosage: PO
     Route: 048
     Dates: start: 20090101, end: 20090101
  3. TRILEPTAL [Concomitant]

REACTIONS (1)
  - STATUS EPILEPTICUS [None]
